FAERS Safety Report 23341454 (Version 1)
Quarter: 2023Q4

REPORT INFORMATION
  Report Type: Spontaneous
  Country: JP (occurrence: JP)
  Receive Date: 20231227
  Receipt Date: 20231227
  Transmission Date: 20240109
  Serious: Yes (Hospitalization)
  Sender: FDA-Public Use
  Company Number: JP-BAYER-2023A183091

PATIENT
  Age: 8 Decade

DRUGS (1)
  1. EYLEA [Suspect]
     Active Substance: AFLIBERCEPT
     Indication: Diabetic retinal oedema
     Dosage: UNK, Q1MON, SOLUTION FOR INJECTION IN PRE-FILLED SYRINGE, 40MG/ML
     Route: 031

REACTIONS (2)
  - Cardiomyopathy [Recovered/Resolved]
  - Physical deconditioning [Recovered/Resolved]

NARRATIVE: CASE EVENT DATE: 20231002
